FAERS Safety Report 18263413 (Version 1)
Quarter: 2020Q3

REPORT INFORMATION
  Report Type: Spontaneous
  Country: US (occurrence: US)
  Receive Date: 20200506
  Receipt Date: 20200506
  Transmission Date: 20201103
  Serious: Yes (Other)
  Sender: FDA-Public Use
  Company Number: None

PATIENT
  Age: 3 Decade
  Sex: Female

DRUGS (5)
  1. SHUANGHUANGLIAN [Suspect]
     Active Substance: HERBALS
     Indication: COVID-19
     Dates: start: 2020
  2. JINYEBAIDU [Suspect]
     Active Substance: HERBALS
     Indication: COVID-19
     Dates: start: 2020
  3. ARBIDOL [Suspect]
     Active Substance: UMIFENOVIR
     Indication: COVID-19
     Dates: start: 2020
  4. OSELTAMIVIR [Suspect]
     Active Substance: OSELTAMIVIR
     Indication: COVID-19
     Dates: start: 2020
  5. MOXIFLOXACIN. [Suspect]
     Active Substance: MOXIFLOXACIN
     Indication: COVID-19
     Dates: start: 2020

REACTIONS (6)
  - Diarrhoea [None]
  - Product use issue [None]
  - Vomiting [None]
  - Pyrexia [None]
  - Product use in unapproved indication [None]
  - Lung consolidation [None]
